FAERS Safety Report 6178092-1 (Version None)
Quarter: 2009Q2

REPORT INFORMATION
  Report Type: 
  Country: None (occurrence: None)
  Receive Date: 20090504
  Receipt Date: 20090204
  Transmission Date: 20091009
  Serious: No
  Sender: FDA-Public Use
  Company Number: US-ALEXION-A200900100

PATIENT

DRUGS (1)
  1. SOLIRIS [Suspect]
     Dosage: UNK

REACTIONS (3)
  - BLOOD LACTATE DEHYDROGENASE ABNORMAL [None]
  - FATIGUE [None]
  - GINGIVAL BLEEDING [None]
